FAERS Safety Report 17469582 (Version 4)
Quarter: 2025Q3

REPORT INFORMATION
  Report Type: Spontaneous
  Country: EU (occurrence: EU)
  Receive Date: 20200227
  Receipt Date: 20250929
  Transmission Date: 20251021
  Serious: Yes (Other)
  Sender: MYLAN
  Company Number: EU-VELOXIS PHARMACEUTICALS-2019VELDE-000770

PATIENT
  Age: 6 Year
  Sex: Male

DRUGS (4)
  1. CYCLOSPORINE [Suspect]
     Active Substance: CYCLOSPORINE
     Indication: Immunosuppressant drug therapy
  2. PREDNISOLONE [Suspect]
     Active Substance: PREDNISOLONE
     Indication: Immunosuppressant drug therapy
  3. MYCOPHENOLATE MOFETIL [Suspect]
     Active Substance: MYCOPHENOLATE MOFETIL
     Indication: Immunosuppressant drug therapy
  4. TACROLIMUS [Suspect]
     Active Substance: TACROLIMUS
     Indication: Immunosuppressant drug therapy

REACTIONS (7)
  - Polyomavirus-associated nephropathy [Unknown]
  - Polyomavirus test positive [Unknown]
  - Polyomavirus viraemia [Recovered/Resolved]
  - Viraemia [Recovered/Resolved]
  - BK virus infection [Recovered/Resolved]
  - Product use issue [Unknown]
  - Medication error [Unknown]
